FAERS Safety Report 6614968-6 (Version None)
Quarter: 2010Q1

REPORT INFORMATION
  Report Type: 
  Country: None (occurrence: None)
  Receive Date: 20100305
  Receipt Date: 20100224
  Transmission Date: 20100710
  Serious: Yes (Other)
  Sender: FDA-Public Use
  Company Number: JP-JNJFOC-20100300977

PATIENT
  Age: 13 Year
  Sex: Female

DRUGS (4)
  1. REMICADE [Suspect]
     Indication: CROHN'S DISEASE
     Route: 042
  2. AZANIN [Suspect]
     Indication: CROHN'S DISEASE
  3. PREDNISOLONE [Suspect]
     Indication: CROHN'S DISEASE
  4. 5-ASA [Concomitant]
     Indication: CROHN'S DISEASE

REACTIONS (2)
  - DEVICE RELATED INFECTION [None]
  - ENCEPHALOPATHY [None]
